FAERS Safety Report 5343184-3 (Version None)
Quarter: 2007Q2

REPORT INFORMATION
  Report Type: 
  Country: None (occurrence: None)
  Receive Date: 20070416
  Receipt Date: 20070309
  Transmission Date: 20071010
  Serious: No
  Sender: FDA-Public Use
  Company Number: 2007SP000884

PATIENT
  Sex: Male

DRUGS (3)
  1. LUNESTA [Suspect]
     Indication: PSYCHOMOTOR HYPERACTIVITY
     Dosage: 2 MG;ORAL
     Route: 048
     Dates: start: 20070101
  2. VALIUM [Concomitant]
  3. GEODON [Concomitant]

REACTIONS (1)
  - SEDATION [None]
